FAERS Safety Report 9920233 (Version 3)
Quarter: 2014Q2

REPORT INFORMATION
  Report Type: Spontaneous
  Country: US (occurrence: US)
  Receive Date: 20140224
  Receipt Date: 20140521
  Transmission Date: 20141212
  Serious: Yes (Hospitalization)
  Sender: FDA-Public Use
  Company Number: US-B.I. PHARMACEUTICALS,INC./RIDGEFIELD-2013-BI-33712BP

PATIENT
  Sex: Female
  Weight: 122.47 kg

DRUGS (8)
  1. PRADAXA [Suspect]
     Indication: ANTICOAGULANT THERAPY
     Dosage: 300 MG
     Route: 065
     Dates: start: 20120618, end: 20120801
  2. PRADAXA [Suspect]
     Indication: ATRIAL FIBRILLATION
  3. SIMVASTATIN [Concomitant]
     Route: 065
  4. LANTUS [Concomitant]
     Indication: TYPE 2 DIABETES MELLITUS
     Route: 065
  5. SYNTHROID [Concomitant]
     Route: 065
  6. METFORMIN [Concomitant]
     Route: 065
  7. ASPIRIN [Concomitant]
     Route: 065
  8. XARELTO [Concomitant]
     Route: 065

REACTIONS (4)
  - Gastrointestinal haemorrhage [Unknown]
  - Haemorrhagic anaemia [Unknown]
  - Coagulopathy [Unknown]
  - Abdominal discomfort [Unknown]
